FAERS Safety Report 21184034 (Version 1)
Quarter: 2022Q3

REPORT INFORMATION
  Report Type: Spontaneous
  Country: US (occurrence: None)
  Receive Date: 20220806
  Receipt Date: 20220806
  Transmission Date: 20221027
  Serious: Yes (Disabling)
  Sender: FDA-Public Use
  Company Number: None

PATIENT
  Age: 56 Year
  Sex: Female
  Weight: 69.75 kg

DRUGS (8)
  1. PAXLOVID [Suspect]
     Active Substance: NIRMATRELVIR\RITONAVIR
     Indication: COVID-19
     Dosage: FREQUENCY : EVERY 12 HOURS;?
     Route: 048
     Dates: start: 20220727, end: 20220801
  2. ACTIVELLA [Concomitant]
     Active Substance: ESTRADIOL\NORETHINDRONE ACETATE
  3. HYDROCHLOROTHIAZIDE [Concomitant]
     Active Substance: HYDROCHLOROTHIAZIDE
  4. ZYRTEC [Concomitant]
     Active Substance: CETIRIZINE HYDROCHLORIDE
  5. VITAMIN D [Suspect]
     Active Substance: VITAMIN D NOS
  6. vitamin B6 complex [Concomitant]
  7. HERBALS\TURMERIC [Concomitant]
     Active Substance: HERBALS\TURMERIC
  8. CALCIUM [Concomitant]
     Active Substance: CALCIUM

REACTIONS (8)
  - COVID-19 [None]
  - Condition aggravated [None]
  - Myalgia [None]
  - Oropharyngeal pain [None]
  - Fatigue [None]
  - Cough [None]
  - Sneezing [None]
  - Feeling cold [None]

NARRATIVE: CASE EVENT DATE: 20220805
